FAERS Safety Report 23385992 (Version 7)
Quarter: 2024Q3

REPORT INFORMATION
  Report Type: Spontaneous
  Country: CA (occurrence: CA)
  Receive Date: 20240110
  Receipt Date: 20240910
  Transmission Date: 20241017
  Serious: Yes (Other)
  Sender: SANDOZ
  Company Number: CA-SANDOZ-SDZ2024CA002013

PATIENT
  Age: 53 Year
  Sex: Male

DRUGS (619)
  1. ADALIMUMAB [Suspect]
     Active Substance: ADALIMUMAB
     Indication: Deep vein thrombosis
     Dosage: 8 DF
     Route: 048
  2. ADALIMUMAB [Suspect]
     Active Substance: ADALIMUMAB
     Dosage: 8 DF
     Route: 048
  3. ADALIMUMAB [Suspect]
     Active Substance: ADALIMUMAB
     Dosage: 8 DF
     Route: 048
  4. ADALIMUMAB [Suspect]
     Active Substance: ADALIMUMAB
     Dosage: 8 DF
     Route: 058
  5. ADALIMUMAB [Suspect]
     Active Substance: ADALIMUMAB
     Dosage: 8 DF
     Route: 058
  6. ADALIMUMAB [Suspect]
     Active Substance: ADALIMUMAB
     Dosage: 8 DF
     Route: 058
  7. ADALIMUMAB [Suspect]
     Active Substance: ADALIMUMAB
     Indication: Colitis ulcerative
     Dosage: UNK
     Route: 058
  8. ADALIMUMAB [Suspect]
     Active Substance: ADALIMUMAB
     Dosage: UNK
     Route: 058
  9. ADALIMUMAB [Suspect]
     Active Substance: ADALIMUMAB
     Dosage: UNK
     Route: 058
  10. ADALIMUMAB [Suspect]
     Active Substance: ADALIMUMAB
     Dosage: UNK
     Route: 058
  11. ADALIMUMAB [Suspect]
     Active Substance: ADALIMUMAB
     Dosage: UNK
     Route: 058
  12. ADALIMUMAB [Suspect]
     Active Substance: ADALIMUMAB
     Dosage: UNK
     Route: 058
  13. ADALIMUMAB [Suspect]
     Active Substance: ADALIMUMAB
     Dosage: UNK
     Route: 058
  14. ADALIMUMAB [Suspect]
     Active Substance: ADALIMUMAB
     Indication: Crohn^s disease
     Dosage: UNK
     Route: 065
  15. ADALIMUMAB [Suspect]
     Active Substance: ADALIMUMAB
     Dosage: UNK
     Route: 065
  16. ACETAMINOPHEN [Suspect]
     Active Substance: ACETAMINOPHEN
     Indication: Product used for unknown indication
     Dosage: 500 MG, 4 EVERY 1 DAYS
     Route: 065
  17. ACETAMINOPHEN [Suspect]
     Active Substance: ACETAMINOPHEN
     Indication: Ill-defined disorder
     Dosage: UNK
     Route: 065
  18. ACETAMINOPHEN [Suspect]
     Active Substance: ACETAMINOPHEN
     Dosage: UNK
     Route: 065
  19. ALBENDAZOLE [Suspect]
     Active Substance: ALBENDAZOLE
     Dosage: UNK
     Route: 042
  20. ALBENDAZOLE [Suspect]
     Active Substance: ALBENDAZOLE
     Dosage: UNK
     Route: 042
  21. ALBENDAZOLE [Suspect]
     Active Substance: ALBENDAZOLE
     Dosage: UNK
     Route: 042
  22. ALBENDAZOLE [Suspect]
     Active Substance: ALBENDAZOLE
     Dosage: UNK
     Route: 042
  23. ALBENDAZOLE [Suspect]
     Active Substance: ALBENDAZOLE
     Dosage: UNK
     Route: 048
  24. ALBENDAZOLE [Suspect]
     Active Substance: ALBENDAZOLE
     Dosage: UNK
     Route: 048
  25. ALBENDAZOLE [Suspect]
     Active Substance: ALBENDAZOLE
     Dosage: UNK
     Route: 048
  26. ALBENDAZOLE [Suspect]
     Active Substance: ALBENDAZOLE
     Indication: Colitis ulcerative
     Dosage: UNK
     Route: 065
  27. ALBENDAZOLE [Suspect]
     Active Substance: ALBENDAZOLE
     Indication: Deep vein thrombosis
     Dosage: UNK
     Route: 065
  28. ASACOL [Suspect]
     Active Substance: MESALAMINE
     Dosage: 1 DF
     Route: 065
  29. ASACOL [Suspect]
     Active Substance: MESALAMINE
     Dosage: 1 DF
     Route: 065
  30. ASACOL [Suspect]
     Active Substance: MESALAMINE
     Dosage: 12 DF, QD
     Route: 065
  31. ASACOL [Suspect]
     Active Substance: MESALAMINE
     Dosage: 12 DF, QD
     Route: 065
  32. ASACOL [Suspect]
     Active Substance: MESALAMINE
     Indication: Colitis ulcerative
     Dosage: 2.4 G, QD
     Route: 065
  33. ASACOL [Suspect]
     Active Substance: MESALAMINE
     Dosage: 2.4 G, QD
     Route: 065
  34. ASACOL [Suspect]
     Active Substance: MESALAMINE
     Dosage: 2.4 G, QD
     Route: 065
  35. ASACOL [Suspect]
     Active Substance: MESALAMINE
     Dosage: 2.4 G, QD
     Route: 065
  36. ASACOL [Suspect]
     Active Substance: MESALAMINE
     Dosage: 24 DF, QD
     Route: 065
  37. ASACOL [Suspect]
     Active Substance: MESALAMINE
     Dosage: 24 DF, QD
     Route: 065
  38. ASACOL [Suspect]
     Active Substance: MESALAMINE
     Dosage: 3 G, QD
     Route: 065
  39. ASACOL [Suspect]
     Active Substance: MESALAMINE
     Dosage: 3 G, QD
     Route: 065
  40. ASACOL [Suspect]
     Active Substance: MESALAMINE
     Dosage: 3 DF, BID
     Route: 065
  41. ASACOL [Suspect]
     Active Substance: MESALAMINE
     Dosage: 3 DF, BID
     Route: 065
  42. ASACOL [Suspect]
     Active Substance: MESALAMINE
     Dosage: 30 DF, BID
     Route: 065
  43. ASACOL [Suspect]
     Active Substance: MESALAMINE
     Dosage: 4.8 G, QD
     Route: 065
  44. ASACOL [Suspect]
     Active Substance: MESALAMINE
     Dosage: 4.8 G, QD
     Route: 065
  45. ASACOL [Suspect]
     Active Substance: MESALAMINE
     Dosage: 4.8 G, QD
     Route: 065
  46. ASACOL [Suspect]
     Active Substance: MESALAMINE
     Dosage: 4.8 G, QD
     Route: 065
  47. ASACOL [Suspect]
     Active Substance: MESALAMINE
     Dosage: 4.8 G, QD
     Route: 065
  48. ASACOL [Suspect]
     Active Substance: MESALAMINE
     Dosage: 4.8 G, QD
     Route: 065
  49. ASACOL [Suspect]
     Active Substance: MESALAMINE
     Dosage: 40 MG, QD
     Route: 065
  50. ASACOL [Suspect]
     Active Substance: MESALAMINE
     Dosage: 40 MG, QD
     Route: 065
  51. ASACOL [Suspect]
     Active Substance: MESALAMINE
     Dosage: 50 MG, QD
     Route: 065
  52. ASACOL [Suspect]
     Active Substance: MESALAMINE
     Dosage: 50 MG
     Route: 048
  53. ASACOL [Suspect]
     Active Substance: MESALAMINE
     Dosage: 50 MG
     Route: 048
  54. ASACOL [Suspect]
     Active Substance: MESALAMINE
     Dosage: 6 DF, QD
     Route: 065
  55. ASACOL [Suspect]
     Active Substance: MESALAMINE
     Dosage: 6 DF, QD
     Route: 065
  56. ASACOL [Suspect]
     Active Substance: MESALAMINE
     Dosage: 6 DF, QD
     Route: 065
  57. ASACOL [Suspect]
     Active Substance: MESALAMINE
     Dosage: UNK
     Route: 065
  58. ASPIRIN [Suspect]
     Active Substance: ASPIRIN
     Indication: Ill-defined disorder
     Dosage: UNK
     Route: 065
  59. ASPIRIN [Suspect]
     Active Substance: ASPIRIN
     Indication: Product used for unknown indication
  60. BUDESONIDE [Suspect]
     Active Substance: BUDESONIDE
     Dosage: 1 DF, QD
     Route: 048
  61. BUDESONIDE [Suspect]
     Active Substance: BUDESONIDE
     Dosage: 1 DF, QD
     Route: 048
  62. BUDESONIDE [Suspect]
     Active Substance: BUDESONIDE
     Dosage: 1 DF, QD
     Route: 048
  63. BUDESONIDE [Suspect]
     Active Substance: BUDESONIDE
     Dosage: 1 DF, QD
     Route: 048
  64. BUDESONIDE [Suspect]
     Active Substance: BUDESONIDE
     Dosage: 1 DF, QD
     Route: 048
  65. BUDESONIDE [Suspect]
     Active Substance: BUDESONIDE
     Dosage: 1 DF, QD
     Route: 048
  66. BUDESONIDE [Suspect]
     Active Substance: BUDESONIDE
     Dosage: 1 DF, QD
     Route: 048
  67. BUDESONIDE [Suspect]
     Active Substance: BUDESONIDE
     Dosage: 1 DF, QD
     Route: 048
  68. BUDESONIDE [Suspect]
     Active Substance: BUDESONIDE
     Dosage: 1 DF, QD
     Route: 048
  69. BUDESONIDE [Suspect]
     Active Substance: BUDESONIDE
     Dosage: 1 DF, QD
     Route: 048
  70. BUDESONIDE [Suspect]
     Active Substance: BUDESONIDE
     Dosage: 1 DF, QD
     Route: 048
  71. BUDESONIDE [Suspect]
     Active Substance: BUDESONIDE
     Dosage: 1 DF, QD
     Route: 048
  72. BUDESONIDE [Suspect]
     Active Substance: BUDESONIDE
     Dosage: 1 DF, QD
     Route: 048
  73. BUDESONIDE [Suspect]
     Active Substance: BUDESONIDE
     Dosage: 1 DF, QD
     Route: 048
  74. BUDESONIDE [Suspect]
     Active Substance: BUDESONIDE
     Dosage: 1 DF, QD
     Route: 048
  75. BUDESONIDE [Suspect]
     Active Substance: BUDESONIDE
     Dosage: 1 DF, QD
     Route: 048
  76. BUDESONIDE [Suspect]
     Active Substance: BUDESONIDE
     Dosage: 1 DF, QD
     Route: 048
  77. BUDESONIDE [Suspect]
     Active Substance: BUDESONIDE
     Indication: Colitis ulcerative
     Dosage: 1 DF, QD
     Route: 065
  78. BUDESONIDE [Suspect]
     Active Substance: BUDESONIDE
     Dosage: 1 DF, QD
     Route: 065
  79. BUDESONIDE [Suspect]
     Active Substance: BUDESONIDE
     Dosage: 1 DF, QD
     Route: 065
  80. BUDESONIDE [Suspect]
     Active Substance: BUDESONIDE
     Dosage: 212 DF
     Route: 048
  81. BUDESONIDE [Suspect]
     Active Substance: BUDESONIDE
     Dosage: 212 DF
     Route: 048
  82. BUDESONIDE [Suspect]
     Active Substance: BUDESONIDE
     Dosage: 245 MG, QD
     Route: 048
  83. BUDESONIDE [Suspect]
     Active Substance: BUDESONIDE
     Dosage: 245 MG, QD
     Route: 048
  84. BUDESONIDE [Suspect]
     Active Substance: BUDESONIDE
     Indication: Product used for unknown indication
     Dosage: 8 DF, 1 EVERY 8 WEEKS
     Route: 048
  85. BUDESONIDE [Suspect]
     Active Substance: BUDESONIDE
     Dosage: 8 DF, 1 EVERY 8 WEEKS
     Route: 048
  86. BUDESONIDE [Suspect]
     Active Substance: BUDESONIDE
     Dosage: 8 DF, 1 EVERY 8 WEEKS
     Route: 048
  87. BUDESONIDE [Suspect]
     Active Substance: BUDESONIDE
     Dosage: 8 DF, 1 EVERY 8 WEEKS
     Route: 048
  88. BUDESONIDE [Suspect]
     Active Substance: BUDESONIDE
     Dosage: 8 DF, 1 EVERY 8 WEEKS
     Route: 048
  89. BUDESONIDE [Suspect]
     Active Substance: BUDESONIDE
     Dosage: 8 DF, 1 EVERY 8 WEEKS
     Route: 048
  90. BUDESONIDE [Suspect]
     Active Substance: BUDESONIDE
     Dosage: 8 DF, 1 EVERY 8 WEEKS
     Route: 048
  91. BUDESONIDE [Suspect]
     Active Substance: BUDESONIDE
     Dosage: 8 DF, 1 EVERY 8 WEEKS
     Route: 048
  92. BUDESONIDE [Suspect]
     Active Substance: BUDESONIDE
     Dosage: 8 DF, 1 EVERY 8 WEEKS
     Route: 048
  93. BUDESONIDE [Suspect]
     Active Substance: BUDESONIDE
     Dosage: 8 DF, 1 EVERY 8 WEEKS
     Route: 048
  94. BUDESONIDE [Suspect]
     Active Substance: BUDESONIDE
     Dosage: 8 DF, 1 EVERY 8 WEEKS
     Route: 048
  95. BUDESONIDE [Suspect]
     Active Substance: BUDESONIDE
     Dosage: 8 DF, 1 EVERY 8 WEEKS
     Route: 048
  96. BUDESONIDE [Suspect]
     Active Substance: BUDESONIDE
     Dosage: 8 DF, 1 EVERY 8 WEEKS
     Route: 048
  97. BUDESONIDE [Suspect]
     Active Substance: BUDESONIDE
     Dosage: 8 DF, 1 EVERY 8 WEEKS
     Route: 048
  98. CANDESARTAN [Suspect]
     Active Substance: CANDESARTAN
     Indication: Colitis ulcerative
     Dosage: UNK
     Route: 048
  99. CANDESARTAN [Suspect]
     Active Substance: CANDESARTAN
     Indication: Product used for unknown indication
     Dosage: UNK
     Route: 048
  100. CANDESARTAN [Suspect]
     Active Substance: CANDESARTAN
     Dosage: UNK
     Route: 048
  101. CANDESARTAN [Suspect]
     Active Substance: CANDESARTAN
     Dosage: UNK
     Route: 048
  102. AZD-1222 [Suspect]
     Active Substance: AZD-1222
     Dosage: 0.5 ML
     Route: 065
  103. AZD-1222 [Suspect]
     Active Substance: AZD-1222
     Indication: Product used for unknown indication
     Dosage: 1.5 ML
     Route: 065
  104. AZD-1222 [Suspect]
     Active Substance: AZD-1222
     Dosage: UNK
     Route: 065
  105. AZD-1222 [Suspect]
     Active Substance: AZD-1222
     Dosage: UNK
     Route: 065
  106. AZD-1222 [Suspect]
     Active Substance: AZD-1222
     Dosage: UNK
     Route: 065
  107. AZD-1222 [Suspect]
     Active Substance: AZD-1222
     Dosage: UNK
     Route: 065
  108. AZD-1222 [Suspect]
     Active Substance: AZD-1222
     Dosage: UNK
     Route: 065
  109. AZD-1222 [Suspect]
     Active Substance: AZD-1222
     Dosage: UNK
     Route: 065
  110. AZD-1222 [Suspect]
     Active Substance: AZD-1222
     Dosage: UNK
     Route: 065
  111. AZD-1222 [Suspect]
     Active Substance: AZD-1222
     Dosage: UNK
     Route: 065
  112. AZD-1222 [Suspect]
     Active Substance: AZD-1222
     Dosage: UNK
     Route: 065
  113. AZD-1222 [Suspect]
     Active Substance: AZD-1222
     Dosage: UNK
     Route: 065
  114. AZD-1222 [Suspect]
     Active Substance: AZD-1222
     Dosage: UNK
     Route: 065
  115. COMIRNATY (TOZINAMERAN) [Suspect]
     Active Substance: TOZINAMERAN
     Indication: Product used for unknown indication
     Dosage: UNK
     Route: 065
  116. CORTIFOAM [Suspect]
     Active Substance: HYDROCORTISONE ACETATE
     Dosage: 1 DF, 1 EVERY 1 DAYS
     Route: 065
  117. CORTIFOAM [Suspect]
     Active Substance: HYDROCORTISONE ACETATE
     Indication: Colitis ulcerative
     Dosage: 8 DF, 1 EVERY 8 WEEKS
     Route: 048
  118. CORTIFOAM [Suspect]
     Active Substance: HYDROCORTISONE ACETATE
     Dosage: 8 DF, 1 EVERY 8 WEEKS
     Route: 048
  119. CORTIFOAM [Suspect]
     Active Substance: HYDROCORTISONE ACETATE
     Dosage: UNK
     Route: 065
  120. CORTIFOAM [Suspect]
     Active Substance: HYDROCORTISONE ACETATE
     Dosage: UNK
     Route: 065
  121. CORTIFOAM [Suspect]
     Active Substance: HYDROCORTISONE ACETATE
     Dosage: UNK
     Route: 065
  122. CORTIFOAM [Suspect]
     Active Substance: HYDROCORTISONE ACETATE
     Dosage: UNK
     Route: 065
  123. CORTIFOAM [Suspect]
     Active Substance: HYDROCORTISONE ACETATE
     Dosage: UNK
     Route: 065
  124. CORTIFOAM [Suspect]
     Active Substance: HYDROCORTISONE ACETATE
     Dosage: UNK
     Route: 065
  125. CORTIFOAM [Suspect]
     Active Substance: HYDROCORTISONE ACETATE
     Dosage: UNK
     Route: 065
  126. CORTIFOAM [Suspect]
     Active Substance: HYDROCORTISONE ACETATE
     Dosage: UNK
     Route: 065
  127. CORTIFOAM [Suspect]
     Active Substance: HYDROCORTISONE ACETATE
     Dosage: UNK
     Route: 065
  128. CORTIFOAM [Suspect]
     Active Substance: HYDROCORTISONE ACETATE
     Dosage: UNK
     Route: 065
  129. CORTIFOAM [Suspect]
     Active Substance: HYDROCORTISONE ACETATE
     Dosage: 1 DF, QD
     Route: 065
  130. CORTIFOAM [Suspect]
     Active Substance: HYDROCORTISONE ACETATE
     Dosage: 8 DF
     Route: 048
  131. CORTIFOAM [Suspect]
     Active Substance: HYDROCORTISONE ACETATE
     Dosage: 8 DF
     Route: 048
  132. CORTIFOAM [Suspect]
     Active Substance: HYDROCORTISONE ACETATE
     Indication: Colitis ulcerative
     Dosage: 8 DF,1 EVERY 8 WEEKS
     Route: 048
  133. CORTIFOAM [Suspect]
     Active Substance: HYDROCORTISONE ACETATE
     Dosage: UNK
     Route: 065
  134. CORTIFOAM [Suspect]
     Active Substance: HYDROCORTISONE ACETATE
     Dosage: UNK
     Route: 065
  135. CORTIFOAM [Suspect]
     Active Substance: HYDROCORTISONE ACETATE
     Dosage: UNK
     Route: 065
  136. CORTIFOAM [Suspect]
     Active Substance: HYDROCORTISONE ACETATE
     Dosage: UNK
     Route: 065
  137. CORTIFOAM [Suspect]
     Active Substance: HYDROCORTISONE ACETATE
     Dosage: UNK
     Route: 065
  138. CORTIFOAM [Suspect]
     Active Substance: HYDROCORTISONE ACETATE
     Dosage: UNK
     Route: 065
  139. CORTIFOAM [Suspect]
     Active Substance: HYDROCORTISONE ACETATE
     Dosage: UNK
     Route: 065
  140. CORTIFOAM [Suspect]
     Active Substance: HYDROCORTISONE ACETATE
     Dosage: UNK
     Route: 065
  141. CORTIFOAM [Suspect]
     Active Substance: HYDROCORTISONE ACETATE
     Dosage: UNK
     Route: 065
  142. CORTIFOAM [Suspect]
     Active Substance: HYDROCORTISONE ACETATE
     Dosage: UNK
     Route: 065
  143. CORTIFOAM [Suspect]
     Active Substance: HYDROCORTISONE ACETATE
     Indication: Colitis ulcerative
     Route: 065
  144. HYDROCORTISONE ACETATE [Suspect]
     Active Substance: HYDROCORTISONE ACETATE
     Dosage: 1 DF
     Route: 048
  145. HYDROCORTISONE ACETATE [Suspect]
     Active Substance: HYDROCORTISONE ACETATE
     Dosage: 1 DF
     Route: 048
  146. HYDROCORTISONE ACETATE [Suspect]
     Active Substance: HYDROCORTISONE ACETATE
     Dosage: 1 DF
     Route: 048
  147. HYDROCORTISONE ACETATE [Suspect]
     Active Substance: HYDROCORTISONE ACETATE
     Dosage: 1 DF
     Route: 048
  148. HYDROCORTISONE ACETATE [Suspect]
     Active Substance: HYDROCORTISONE ACETATE
     Dosage: 1 DF
     Route: 048
  149. HYDROCORTISONE ACETATE [Suspect]
     Active Substance: HYDROCORTISONE ACETATE
     Dosage: 1 DF
     Route: 048
  150. HYDROCORTISONE ACETATE [Suspect]
     Active Substance: HYDROCORTISONE ACETATE
     Dosage: 1 DF
     Route: 048
  151. HYDROCORTISONE ACETATE [Suspect]
     Active Substance: HYDROCORTISONE ACETATE
     Dosage: 1 DF
     Route: 048
  152. HYDROCORTISONE ACETATE [Suspect]
     Active Substance: HYDROCORTISONE ACETATE
     Indication: Colitis ulcerative
     Dosage: 8 DF
     Route: 048
  153. HYDROCORTISONE ACETATE [Suspect]
     Active Substance: HYDROCORTISONE ACETATE
     Dosage: 8 DF
     Route: 048
  154. HYDROCORTISONE ACETATE [Suspect]
     Active Substance: HYDROCORTISONE ACETATE
     Dosage: 8 DF
     Route: 048
  155. HYDROCORTISONE ACETATE [Suspect]
     Active Substance: HYDROCORTISONE ACETATE
     Dosage: 8 DF
     Route: 048
  156. HYDROCORTISONE ACETATE [Suspect]
     Active Substance: HYDROCORTISONE ACETATE
     Dosage: 8 DF
     Route: 048
  157. HYDROCORTISONE ACETATE [Suspect]
     Active Substance: HYDROCORTISONE ACETATE
     Dosage: 8 DF
     Route: 048
  158. HYDROCORTISONE ACETATE [Suspect]
     Active Substance: HYDROCORTISONE ACETATE
     Dosage: 8 DF
     Route: 048
  159. HYDROCORTISONE ACETATE [Suspect]
     Active Substance: HYDROCORTISONE ACETATE
     Dosage: 8 DF
     Route: 048
  160. HYDROCORTISONE ACETATE [Suspect]
     Active Substance: HYDROCORTISONE ACETATE
     Dosage: 8 DF
     Route: 048
  161. HYDROCORTISONE ACETATE [Suspect]
     Active Substance: HYDROCORTISONE ACETATE
     Dosage: 8 DF
     Route: 048
  162. HYDROCORTISONE ACETATE [Suspect]
     Active Substance: HYDROCORTISONE ACETATE
     Indication: Product used for unknown indication
     Dosage: 8 DF, 1 EVERY 8 WEEKS
     Route: 065
  163. HYDROCORTISONE ACETATE [Suspect]
     Active Substance: HYDROCORTISONE ACETATE
     Dosage: UNK
     Route: 048
  164. HYDROCORTISONE ACETATE [Suspect]
     Active Substance: HYDROCORTISONE ACETATE
     Dosage: UNK
     Route: 048
  165. HYDROCORTISONE ACETATE [Suspect]
     Active Substance: HYDROCORTISONE ACETATE
     Dosage: UNK
     Route: 048
  166. HYDROCORTISONE ACETATE [Suspect]
     Active Substance: HYDROCORTISONE ACETATE
     Dosage: UNK
     Route: 048
  167. HYDROCORTISONE ACETATE [Suspect]
     Active Substance: HYDROCORTISONE ACETATE
     Dosage: UNK
     Route: 048
  168. HYDROCORTISONE ACETATE [Suspect]
     Active Substance: HYDROCORTISONE ACETATE
     Dosage: UNK
     Route: 048
  169. HYDROCORTISONE ACETATE [Suspect]
     Active Substance: HYDROCORTISONE ACETATE
     Dosage: UNK
     Route: 048
  170. HYDROCORTISONE ACETATE [Suspect]
     Active Substance: HYDROCORTISONE ACETATE
     Dosage: UNK
     Route: 048
  171. HYDROCORTISONE ACETATE [Suspect]
     Active Substance: HYDROCORTISONE ACETATE
     Dosage: UNK
     Route: 048
  172. HYDROCORTISONE ACETATE [Suspect]
     Active Substance: HYDROCORTISONE ACETATE
     Dosage: UNK
     Route: 048
  173. HYDROCORTISONE ACETATE [Suspect]
     Active Substance: HYDROCORTISONE ACETATE
     Dosage: UNK
     Route: 048
  174. HYDROCORTISONE ACETATE [Suspect]
     Active Substance: HYDROCORTISONE ACETATE
     Dosage: UNK
     Route: 048
  175. CORTISONE [Suspect]
     Active Substance: CORTISONE
     Dosage: 1 DF
     Route: 065
  176. CORTISONE [Suspect]
     Active Substance: CORTISONE
     Dosage: 1 DF
     Route: 065
  177. CORTISONE [Suspect]
     Active Substance: CORTISONE
     Dosage: 6 DF, QW
     Route: 065
  178. CORTISONE [Suspect]
     Active Substance: CORTISONE
     Dosage: 6 DF, QW
     Route: 065
  179. CORTISONE [Suspect]
     Active Substance: CORTISONE
     Dosage: 8 MG, QW
     Route: 065
  180. CORTISONE [Suspect]
     Active Substance: CORTISONE
     Dosage: 8 MG, QW
     Route: 065
  181. CORTISONE [Suspect]
     Active Substance: CORTISONE
     Dosage: 8 MG, QW
     Route: 065
  182. CORTISONE [Suspect]
     Active Substance: CORTISONE
     Dosage: 8 MG, QW
     Route: 065
  183. CORTISONE [Suspect]
     Active Substance: CORTISONE
     Dosage: 8 MG, QW
     Route: 065
  184. CORTISONE [Suspect]
     Active Substance: CORTISONE
     Dosage: 8 MG, QW
     Route: 065
  185. CORTISONE [Suspect]
     Active Substance: CORTISONE
     Dosage: 8 MG, QW
     Route: 065
  186. CORTISONE [Suspect]
     Active Substance: CORTISONE
     Dosage: 8 MG, QW
     Route: 065
  187. CORTISONE [Suspect]
     Active Substance: CORTISONE
     Indication: Colitis ulcerative
     Dosage: UNK
     Route: 065
  188. CORTISONE [Suspect]
     Active Substance: CORTISONE
     Dosage: UNK
     Route: 065
  189. CORTISONE [Suspect]
     Active Substance: CORTISONE
     Dosage: UNK
     Route: 065
  190. CORTISONE [Suspect]
     Active Substance: CORTISONE
     Indication: Crohn^s disease
     Route: 065
  191. DAPAGLIFLOZIN [Suspect]
     Active Substance: DAPAGLIFLOZIN
     Indication: Cardiac failure chronic
     Dosage: UNK
     Route: 065
  192. DAPAGLIFLOZIN [Suspect]
     Active Substance: DAPAGLIFLOZIN
     Indication: Ill-defined disorder
     Route: 065
  193. DESOXIMETASONE [Suspect]
     Active Substance: DESOXIMETASONE
     Indication: Colitis ulcerative
     Dosage: 1 DF, QD
     Route: 065
  194. DESOXIMETASONE [Suspect]
     Active Substance: DESOXIMETASONE
     Dosage: 2 DF, QD
     Route: 048
  195. DESOXIMETASONE [Suspect]
     Active Substance: DESOXIMETASONE
     Dosage: 3 DF, BID
     Route: 048
  196. DESOXIMETASONE [Suspect]
     Active Substance: DESOXIMETASONE
     Dosage: 3 DF
     Route: 048
  197. DESOXIMETASONE [Suspect]
     Active Substance: DESOXIMETASONE
     Dosage: 4 DF
     Route: 065
  198. DESOXIMETASONE [Suspect]
     Active Substance: DESOXIMETASONE
     Dosage: 4 DF
     Route: 065
  199. DESOXIMETASONE [Suspect]
     Active Substance: DESOXIMETASONE
     Dosage: 8 DF, QD
     Route: 048
  200. DESOXIMETASONE [Suspect]
     Active Substance: DESOXIMETASONE
     Dosage: 8 DF, QD
     Route: 048
  201. DESOXIMETASONE [Suspect]
     Active Substance: DESOXIMETASONE
     Dosage: 8 DF, 1 EVERY 8 WEEKS
     Route: 048
  202. DESOXIMETASONE [Suspect]
     Active Substance: DESOXIMETASONE
     Dosage: 8 DF, 1 EVERY 8 WEEKS
     Route: 048
  203. DESOXIMETASONE [Suspect]
     Active Substance: DESOXIMETASONE
     Dosage: UNK
     Route: 048
  204. DESOXIMETASONE [Suspect]
     Active Substance: DESOXIMETASONE
     Dosage: UNK
     Route: 048
  205. DESOXIMETASONE [Suspect]
     Active Substance: DESOXIMETASONE
     Dosage: UNK
     Route: 048
  206. DESOXIMETASONE [Suspect]
     Active Substance: DESOXIMETASONE
     Dosage: UNK
     Route: 048
  207. DESOXIMETASONE [Suspect]
     Active Substance: DESOXIMETASONE
     Indication: Crohn^s disease
     Dosage: UNK
     Route: 065
  208. ESCITALOPRAM [Suspect]
     Active Substance: ESCITALOPRAM OXALATE
     Indication: Product used for unknown indication
     Dosage: 10 MG, QD
     Route: 065
  209. ESOMEPRAZOLE [Suspect]
     Active Substance: ESOMEPRAZOLE
     Indication: Gastritis
     Dosage: UNK
     Route: 065
  210. ENTYVIO [Suspect]
     Active Substance: VEDOLIZUMAB
     Dosage: 1 DF 1 EVERY 1 DAYS
     Route: 048
  211. ENTYVIO [Suspect]
     Active Substance: VEDOLIZUMAB
     Dosage: 1 DF 1 EVERY 1 DAYS
     Route: 048
  212. ENTYVIO [Suspect]
     Active Substance: VEDOLIZUMAB
     Dosage: 1 DF 1 EVERY 1 DAYS
     Route: 048
  213. ENTYVIO [Suspect]
     Active Substance: VEDOLIZUMAB
     Dosage: 1 DF 1 EVERY 1 DAYS
     Route: 048
  214. ENTYVIO [Suspect]
     Active Substance: VEDOLIZUMAB
     Dosage: 1 DF 1 EVERY 1 DAYS
     Route: 048
  215. ENTYVIO [Suspect]
     Active Substance: VEDOLIZUMAB
     Dosage: 1 DF 1 EVERY 1 DAYS
     Route: 048
  216. ENTYVIO [Suspect]
     Active Substance: VEDOLIZUMAB
     Dosage: 1 DF 1 EVERY 1 DAYS
     Route: 048
  217. ENTYVIO [Suspect]
     Active Substance: VEDOLIZUMAB
     Dosage: 1 DF 1 EVERY 1 DAYS
     Route: 048
  218. ENTYVIO [Suspect]
     Active Substance: VEDOLIZUMAB
     Dosage: 1 DF 1 EVERY 1 DAYS
     Route: 048
  219. ENTYVIO [Suspect]
     Active Substance: VEDOLIZUMAB
     Dosage: 1 DF 1 EVERY 1 DAYS
     Route: 048
  220. ENTYVIO [Suspect]
     Active Substance: VEDOLIZUMAB
     Dosage: 1 DF, 1 EVERY 1 DAY
     Route: 065
  221. ENTYVIO [Suspect]
     Active Substance: VEDOLIZUMAB
     Indication: Colitis ulcerative
     Dosage: 50 MG
     Route: 065
  222. ENTYVIO [Suspect]
     Active Substance: VEDOLIZUMAB
     Indication: Deep vein thrombosis
     Dosage: 8 DF
     Route: 042
  223. ENTYVIO [Suspect]
     Active Substance: VEDOLIZUMAB
     Dosage: 8 DF
     Route: 042
  224. ENTYVIO [Suspect]
     Active Substance: VEDOLIZUMAB
     Dosage: 8 DF
     Route: 048
  225. ENTYVIO [Suspect]
     Active Substance: VEDOLIZUMAB
     Indication: Product used for unknown indication
     Dosage: UNK
     Route: 042
  226. ENTYVIO [Suspect]
     Active Substance: VEDOLIZUMAB
     Dosage: UNK
     Route: 042
  227. ENTYVIO [Suspect]
     Active Substance: VEDOLIZUMAB
     Dosage: UNK
     Route: 042
  228. ENTYVIO [Suspect]
     Active Substance: VEDOLIZUMAB
     Dosage: UNK
     Route: 042
  229. ENTYVIO [Suspect]
     Active Substance: VEDOLIZUMAB
     Dosage: UNK
     Route: 042
  230. ENTYVIO [Suspect]
     Active Substance: VEDOLIZUMAB
     Dosage: UNK
     Route: 042
  231. ENTYVIO [Suspect]
     Active Substance: VEDOLIZUMAB
     Dosage: UNK
     Route: 042
  232. ENTYVIO [Suspect]
     Active Substance: VEDOLIZUMAB
     Dosage: UNK
     Route: 042
  233. ENTYVIO [Suspect]
     Active Substance: VEDOLIZUMAB
     Dosage: UNK
     Route: 042
  234. ENTYVIO [Suspect]
     Active Substance: VEDOLIZUMAB
     Dosage: UNK
     Route: 042
  235. ENTYVIO [Suspect]
     Active Substance: VEDOLIZUMAB
     Dosage: UNK
     Route: 042
  236. ENTYVIO [Suspect]
     Active Substance: VEDOLIZUMAB
     Dosage: UNK
     Route: 042
  237. ENTYVIO [Suspect]
     Active Substance: VEDOLIZUMAB
     Dosage: UNK
     Route: 042
  238. ENTYVIO [Suspect]
     Active Substance: VEDOLIZUMAB
     Dosage: UNK
     Route: 042
  239. ENTYVIO [Suspect]
     Active Substance: VEDOLIZUMAB
     Dosage: UNK
     Route: 042
  240. ENTYVIO [Suspect]
     Active Substance: VEDOLIZUMAB
     Dosage: UNK
     Route: 042
  241. ENTYVIO [Suspect]
     Active Substance: VEDOLIZUMAB
     Dosage: UNK
     Route: 042
  242. ENTYVIO [Suspect]
     Active Substance: VEDOLIZUMAB
     Dosage: UNK
     Route: 042
  243. ENTYVIO [Suspect]
     Active Substance: VEDOLIZUMAB
     Dosage: UNK
     Route: 042
  244. ENTYVIO [Suspect]
     Active Substance: VEDOLIZUMAB
     Dosage: UNK
     Route: 042
  245. ENTYVIO [Suspect]
     Active Substance: VEDOLIZUMAB
     Dosage: UNK
     Route: 042
  246. ENTYVIO [Suspect]
     Active Substance: VEDOLIZUMAB
     Dosage: UNK
     Route: 042
  247. ENTYVIO [Suspect]
     Active Substance: VEDOLIZUMAB
     Dosage: UNK
     Route: 042
  248. ENTYVIO [Suspect]
     Active Substance: VEDOLIZUMAB
     Dosage: UNK
     Route: 042
  249. ENTYVIO [Suspect]
     Active Substance: VEDOLIZUMAB
     Dosage: UNK
     Route: 042
  250. ENTYVIO [Suspect]
     Active Substance: VEDOLIZUMAB
     Dosage: UNK
     Route: 042
  251. ENTYVIO [Suspect]
     Active Substance: VEDOLIZUMAB
     Dosage: UNK
     Route: 042
  252. ENTYVIO [Suspect]
     Active Substance: VEDOLIZUMAB
     Dosage: UNK
     Route: 042
  253. ENTYVIO [Suspect]
     Active Substance: VEDOLIZUMAB
     Dosage: UNK
     Route: 042
  254. ENTYVIO [Suspect]
     Active Substance: VEDOLIZUMAB
     Dosage: UNK
     Route: 042
  255. ENTYVIO [Suspect]
     Active Substance: VEDOLIZUMAB
     Dosage: UNK
     Route: 042
  256. ENTYVIO [Suspect]
     Active Substance: VEDOLIZUMAB
     Dosage: UNK
     Route: 042
  257. ENTYVIO [Suspect]
     Active Substance: VEDOLIZUMAB
     Dosage: UNK
     Route: 042
  258. ENTYVIO [Suspect]
     Active Substance: VEDOLIZUMAB
     Dosage: UNK
     Route: 042
  259. ENTYVIO [Suspect]
     Active Substance: VEDOLIZUMAB
     Dosage: UNK
     Route: 065
  260. EPINEPHRINE [Suspect]
     Active Substance: EPINEPHRINE
     Indication: Product used for unknown indication
     Dosage: UNK
     Route: 065
  261. FELODIPINE [Suspect]
     Active Substance: FELODIPINE
     Indication: Hypertension
     Dosage: 2.5 MG, BID
     Route: 048
  262. FUROSEMIDE [Suspect]
     Active Substance: FUROSEMIDE
     Indication: Product used for unknown indication
     Dosage: 20 MG, QD
     Route: 065
  263. GABAPENTIN [Suspect]
     Active Substance: GABAPENTIN
     Indication: Product used for unknown indication
     Dosage: 300 MG, TID
     Route: 065
  264. HYDROCORTISONE [Suspect]
     Active Substance: HYDROCORTISONE\HYDROCORTISONE ACETATE
     Dosage: 1 DF, QD
     Route: 048
  265. HYDROCORTISONE [Suspect]
     Active Substance: HYDROCORTISONE\HYDROCORTISONE ACETATE
     Dosage: 1 DF, QD
     Route: 048
  266. HYDROCORTISONE [Suspect]
     Active Substance: HYDROCORTISONE\HYDROCORTISONE ACETATE
     Dosage: 1 DF, QD
     Route: 065
  267. HYDROCORTISONE [Suspect]
     Active Substance: HYDROCORTISONE\HYDROCORTISONE ACETATE
     Indication: Colitis ulcerative
     Dosage: 3 DF, BID
     Route: 048
  268. HYDROCORTISONE [Suspect]
     Active Substance: HYDROCORTISONE\HYDROCORTISONE ACETATE
     Dosage: 6 DF, QD
     Route: 048
  269. HYDROCORTISONE [Suspect]
     Active Substance: HYDROCORTISONE\HYDROCORTISONE ACETATE
     Dosage: 6 DF, QD
     Route: 048
  270. HYDROCORTISONE [Suspect]
     Active Substance: HYDROCORTISONE\HYDROCORTISONE ACETATE
     Dosage: 8 DF
     Route: 048
  271. HYDROCORTISONE [Suspect]
     Active Substance: HYDROCORTISONE\HYDROCORTISONE ACETATE
     Dosage: 8 DF
     Route: 048
  272. HYDROCORTISONE [Suspect]
     Active Substance: HYDROCORTISONE\HYDROCORTISONE ACETATE
     Dosage: 8 DF
     Route: 048
  273. HYDROCORTISONE [Suspect]
     Active Substance: HYDROCORTISONE\HYDROCORTISONE ACETATE
     Dosage: 8 DF
     Route: 048
  274. HYDROCORTISONE [Suspect]
     Active Substance: HYDROCORTISONE\HYDROCORTISONE ACETATE
     Dosage: 8 DF
     Route: 048
  275. HYDROCORTISONE [Suspect]
     Active Substance: HYDROCORTISONE\HYDROCORTISONE ACETATE
     Dosage: 8 DF
     Route: 048
  276. HYDROCORTISONE [Suspect]
     Active Substance: HYDROCORTISONE\HYDROCORTISONE ACETATE
     Dosage: 8 DF
     Route: 048
  277. HYDROCORTISONE [Suspect]
     Active Substance: HYDROCORTISONE\HYDROCORTISONE ACETATE
     Dosage: 8 DF
     Route: 048
  278. HYDROCORTISONE [Suspect]
     Active Substance: HYDROCORTISONE\HYDROCORTISONE ACETATE
     Dosage: 8 DF
     Route: 048
  279. HYDROCORTISONE [Suspect]
     Active Substance: HYDROCORTISONE\HYDROCORTISONE ACETATE
     Dosage: 8 DF
     Route: 048
  280. HYDROCORTISONE [Suspect]
     Active Substance: HYDROCORTISONE\HYDROCORTISONE ACETATE
     Dosage: 8 DF
     Route: 048
  281. HYDROCORTISONE [Suspect]
     Active Substance: HYDROCORTISONE\HYDROCORTISONE ACETATE
     Dosage: 8 DF 1 EVERY 8 WEEKS
     Route: 048
  282. HYDROCORTISONE [Suspect]
     Active Substance: HYDROCORTISONE\HYDROCORTISONE ACETATE
     Dosage: UNK, QD
     Route: 048
  283. HYDROCORTISONE [Suspect]
     Active Substance: HYDROCORTISONE\HYDROCORTISONE ACETATE
     Dosage: UNK
     Route: 048
  284. HYDROCORTISONE [Suspect]
     Active Substance: HYDROCORTISONE\HYDROCORTISONE ACETATE
     Dosage: UNK DF
     Route: 048
  285. HUMIRA [Suspect]
     Active Substance: ADALIMUMAB
     Dosage: 8 DF
     Route: 048
  286. HUMIRA [Suspect]
     Active Substance: ADALIMUMAB
     Dosage: 8 DF
     Route: 058
  287. HUMIRA [Suspect]
     Active Substance: ADALIMUMAB
     Dosage: 8 DF
     Route: 065
  288. HUMIRA [Suspect]
     Active Substance: ADALIMUMAB
     Dosage: UNK
     Route: 048
  289. HUMIRA [Suspect]
     Active Substance: ADALIMUMAB
     Indication: Crohn^s disease
     Dosage: UNK
     Route: 058
  290. HUMIRA [Suspect]
     Active Substance: ADALIMUMAB
     Indication: Deep vein thrombosis
     Dosage: UNK
     Route: 065
  291. HUMIRA [Suspect]
     Active Substance: ADALIMUMAB
     Dosage: UNK
     Route: 065
  292. INFLECTRA [Suspect]
     Active Substance: INFLIXIMAB-DYYB
     Dosage: 5 MG/KG
     Route: 042
  293. INFLECTRA [Suspect]
     Active Substance: INFLIXIMAB-DYYB
     Dosage: 5 MG/KG
     Route: 042
  294. INFLECTRA [Suspect]
     Active Substance: INFLIXIMAB-DYYB
     Indication: Crohn^s disease
     Dosage: POWDER FOR SOLUTION INTRAVENOUS
     Route: 065
  295. INFLECTRA [Suspect]
     Active Substance: INFLIXIMAB-DYYB
     Dosage: UNK
     Route: 042
  296. INFLECTRA [Suspect]
     Active Substance: INFLIXIMAB-DYYB
     Dosage: UNK
     Route: 042
  297. INFLECTRA [Suspect]
     Active Substance: INFLIXIMAB-DYYB
     Dosage: UNK
     Route: 042
  298. INFLECTRA [Suspect]
     Active Substance: INFLIXIMAB-DYYB
     Dosage: UNK
     Route: 042
  299. INFLECTRA [Suspect]
     Active Substance: INFLIXIMAB-DYYB
     Dosage: UNK
     Route: 042
  300. INFLECTRA [Suspect]
     Active Substance: INFLIXIMAB-DYYB
     Dosage: UNK
     Route: 048
  301. INFLECTRA [Suspect]
     Active Substance: INFLIXIMAB-DYYB
     Dosage: UNK
     Route: 048
  302. INFLECTRA [Suspect]
     Active Substance: INFLIXIMAB-DYYB
     Dosage: UNK
     Route: 048
  303. INFLECTRA [Suspect]
     Active Substance: INFLIXIMAB-DYYB
     Dosage: UNK
     Route: 048
  304. INFLECTRA [Suspect]
     Active Substance: INFLIXIMAB-DYYB
     Indication: Colitis ulcerative
     Dosage: UNK
     Route: 065
  305. INFLECTRA [Suspect]
     Active Substance: INFLIXIMAB-DYYB
     Dosage: UNK
     Route: 065
  306. INFLECTRA [Suspect]
     Active Substance: INFLIXIMAB-DYYB
     Dosage: UNK
     Route: 065
  307. INFLECTRA [Suspect]
     Active Substance: INFLIXIMAB-DYYB
     Dosage: UNK
     Route: 065
  308. INFLECTRA [Suspect]
     Active Substance: INFLIXIMAB-DYYB
     Dosage: UNK
     Route: 065
  309. INFLIXIMAB [Suspect]
     Active Substance: INFLIXIMAB
     Dosage: 12 MG, QW
     Route: 042
  310. INFLIXIMAB [Suspect]
     Active Substance: INFLIXIMAB
     Dosage: 12 MG, QW
     Route: 042
  311. INFLIXIMAB [Suspect]
     Active Substance: INFLIXIMAB
     Dosage: 12 MG, QW
     Route: 042
  312. INFLIXIMAB [Suspect]
     Active Substance: INFLIXIMAB
     Dosage: 12 MG, QW
     Route: 042
  313. INFLIXIMAB [Suspect]
     Active Substance: INFLIXIMAB
     Dosage: 12 MG, QW
     Route: 042
  314. INFLIXIMAB [Suspect]
     Active Substance: INFLIXIMAB
     Dosage: 12 MG, QW
     Route: 042
  315. INFLIXIMAB [Suspect]
     Active Substance: INFLIXIMAB
     Dosage: 12 MG, QW
     Route: 042
  316. INFLIXIMAB [Suspect]
     Active Substance: INFLIXIMAB
     Dosage: 12 MG, QW
     Route: 042
  317. INFLIXIMAB [Suspect]
     Active Substance: INFLIXIMAB
     Dosage: 12 MG, QW
     Route: 042
  318. INFLIXIMAB [Suspect]
     Active Substance: INFLIXIMAB
     Dosage: 12 MG, QW
     Route: 042
  319. INFLIXIMAB [Suspect]
     Active Substance: INFLIXIMAB
     Dosage: 12 MG, QW
     Route: 042
  320. INFLIXIMAB [Suspect]
     Active Substance: INFLIXIMAB
     Dosage: 12 MG, QW
     Route: 042
  321. INFLIXIMAB [Suspect]
     Active Substance: INFLIXIMAB
     Dosage: 8 DF
     Route: 042
  322. INFLIXIMAB [Suspect]
     Active Substance: INFLIXIMAB
     Dosage: 8 DF
     Route: 042
  323. INFLIXIMAB [Suspect]
     Active Substance: INFLIXIMAB
     Dosage: 8 DF
     Route: 042
  324. INFLIXIMAB [Suspect]
     Active Substance: INFLIXIMAB
     Dosage: 8 DF
     Route: 042
  325. INFLIXIMAB [Suspect]
     Active Substance: INFLIXIMAB
     Dosage: 8 DF
     Route: 042
  326. INFLIXIMAB [Suspect]
     Active Substance: INFLIXIMAB
     Dosage: 8 DF
     Route: 042
  327. INFLIXIMAB [Suspect]
     Active Substance: INFLIXIMAB
     Dosage: 5 MG/KG
     Route: 042
  328. INFLIXIMAB [Suspect]
     Active Substance: INFLIXIMAB
     Dosage: 5 MG/KG
     Route: 042
  329. INFLIXIMAB [Suspect]
     Active Substance: INFLIXIMAB
     Dosage: 5 MG/KG
     Route: 042
  330. INFLIXIMAB [Suspect]
     Active Substance: INFLIXIMAB
     Dosage: 5 MG/KG
     Route: 042
  331. INFLIXIMAB [Suspect]
     Active Substance: INFLIXIMAB
     Dosage: 5 MG/KG
     Route: 042
  332. INFLIXIMAB [Suspect]
     Active Substance: INFLIXIMAB
     Dosage: 5 MG/KG
     Route: 042
  333. INFLIXIMAB [Suspect]
     Active Substance: INFLIXIMAB
     Dosage: 5 MG/KG
     Route: 042
  334. INFLIXIMAB [Suspect]
     Active Substance: INFLIXIMAB
     Dosage: 5 MG/KG
     Route: 042
  335. INFLIXIMAB [Suspect]
     Active Substance: INFLIXIMAB
     Dosage: 5 MG/KG
     Route: 042
  336. INFLIXIMAB [Suspect]
     Active Substance: INFLIXIMAB
     Dosage: 5 MG/KG
     Route: 042
  337. INFLIXIMAB [Suspect]
     Active Substance: INFLIXIMAB
     Dosage: 5 MG/KG
     Route: 042
  338. INFLIXIMAB [Suspect]
     Active Substance: INFLIXIMAB
     Dosage: 5 MG/KG
     Route: 042
  339. INFLIXIMAB [Suspect]
     Active Substance: INFLIXIMAB
     Dosage: 5 MG/KG
     Route: 042
  340. INFLIXIMAB [Suspect]
     Active Substance: INFLIXIMAB
     Dosage: 5 MG/KG
     Route: 042
  341. INFLIXIMAB [Suspect]
     Active Substance: INFLIXIMAB
     Dosage: 5 MG/KG
     Route: 042
  342. INFLIXIMAB [Suspect]
     Active Substance: INFLIXIMAB
     Indication: Colitis ulcerative
     Dosage: 1 EVERY 8 WEEKS
     Route: 065
  343. INFLIXIMAB [Suspect]
     Active Substance: INFLIXIMAB
     Dosage: UNK
     Route: 042
  344. INFLIXIMAB [Suspect]
     Active Substance: INFLIXIMAB
     Dosage: UNK
     Route: 042
  345. INFLIXIMAB [Suspect]
     Active Substance: INFLIXIMAB
     Dosage: UNK
     Route: 042
  346. INFLIXIMAB [Suspect]
     Active Substance: INFLIXIMAB
     Dosage: UNK
     Route: 042
  347. INFLIXIMAB [Suspect]
     Active Substance: INFLIXIMAB
     Dosage: UNK
     Route: 042
  348. INFLIXIMAB [Suspect]
     Active Substance: INFLIXIMAB
     Dosage: UNK
     Route: 042
  349. INFLIXIMAB [Suspect]
     Active Substance: INFLIXIMAB
     Dosage: UNK
     Route: 042
  350. INFLIXIMAB [Suspect]
     Active Substance: INFLIXIMAB
     Dosage: UNK
     Route: 042
  351. INFLIXIMAB [Suspect]
     Active Substance: INFLIXIMAB
     Dosage: UNK
     Route: 042
  352. INFLIXIMAB [Suspect]
     Active Substance: INFLIXIMAB
     Dosage: UNK
     Route: 042
  353. INFLIXIMAB [Suspect]
     Active Substance: INFLIXIMAB
     Dosage: UNK
     Route: 042
  354. INFLIXIMAB [Suspect]
     Active Substance: INFLIXIMAB
     Dosage: UNK
     Route: 042
  355. INFLIXIMAB [Suspect]
     Active Substance: INFLIXIMAB
     Dosage: UNK
     Route: 042
  356. INFLIXIMAB [Suspect]
     Active Substance: INFLIXIMAB
     Dosage: UNK
     Route: 042
  357. INFLIXIMAB [Suspect]
     Active Substance: INFLIXIMAB
     Dosage: UNK
     Route: 042
  358. INFLIXIMAB [Suspect]
     Active Substance: INFLIXIMAB
     Indication: Crohn^s disease
     Dosage: UNK
     Route: 065
  359. LISDEXAMFETAMINE DIMESYLATE [Suspect]
     Active Substance: LISDEXAMFETAMINE DIMESYLATE
     Indication: Product used for unknown indication
     Dosage: UNK
     Route: 065
  360. LEVOTHYROXINE SODIUM [Suspect]
     Active Substance: LEVOTHYROXINE SODIUM
     Indication: Product used for unknown indication
     Dosage: 100 MG, QD
     Route: 065
  361. MESALAMINE [Suspect]
     Active Substance: MESALAMINE
     Dosage: 1 DF, QD
     Route: 065
  362. MESALAMINE [Suspect]
     Active Substance: MESALAMINE
     Dosage: 12 DF, QD
     Route: 065
  363. MESALAMINE [Suspect]
     Active Substance: MESALAMINE
     Dosage: 2.4 G, QD
     Route: 065
  364. MESALAMINE [Suspect]
     Active Substance: MESALAMINE
     Dosage: 3 G, QD
     Route: 065
  365. MESALAMINE [Suspect]
     Active Substance: MESALAMINE
     Dosage: 30 DF, BID
     Route: 065
  366. MESALAMINE [Suspect]
     Active Substance: MESALAMINE
     Dosage: 4.8 G, QD
     Route: 065
  367. MESALAMINE [Suspect]
     Active Substance: MESALAMINE
     Dosage: 4.8 MG, QD
     Route: 065
  368. MESALAMINE [Suspect]
     Active Substance: MESALAMINE
     Indication: Colitis ulcerative
     Dosage: 50 MG
     Route: 048
  369. MESALAMINE [Suspect]
     Active Substance: MESALAMINE
     Dosage: 50 MG
     Route: 048
  370. MESALAMINE [Suspect]
     Active Substance: MESALAMINE
     Dosage: 50 MG
     Route: 065
  371. MESALAMINE [Suspect]
     Active Substance: MESALAMINE
     Dosage: 50 MG
     Route: 065
  372. MESALAMINE [Suspect]
     Active Substance: MESALAMINE
     Dosage: 50 MG
     Route: 065
  373. MESALAMINE [Suspect]
     Active Substance: MESALAMINE
     Dosage: 6 DF, QD
     Route: 048
  374. MESALAMINE [Suspect]
     Active Substance: MESALAMINE
     Dosage: 6 DF, QD
     Route: 048
  375. MESALAMINE [Suspect]
     Active Substance: MESALAMINE
     Dosage: 6 DF, QD
     Route: 048
  376. MESALAMINE [Suspect]
     Active Substance: MESALAMINE
     Dosage: 8 DF
     Route: 048
  377. MESALAMINE [Suspect]
     Active Substance: MESALAMINE
     Dosage: 4.8 UNK, QD
     Route: 065
  378. MESALAMINE [Suspect]
     Active Substance: MESALAMINE
     Dosage: UNK
     Route: 048
  379. MESALAMINE [Suspect]
     Active Substance: MESALAMINE
     Dosage: UNK
     Route: 048
  380. MESALAMINE [Suspect]
     Active Substance: MESALAMINE
     Dosage: UNK
     Route: 048
  381. MESALAMINE [Suspect]
     Active Substance: MESALAMINE
     Dosage: UNK
     Route: 065
  382. MESALAMINE [Suspect]
     Active Substance: MESALAMINE
     Dosage: UNK
     Route: 065
  383. MESALAMINE [Suspect]
     Active Substance: MESALAMINE
     Dosage: UNK
     Route: 065
  384. MESALAMINE [Suspect]
     Active Substance: MESALAMINE
     Dosage: UNK
     Route: 065
  385. MESALAMINE [Suspect]
     Active Substance: MESALAMINE
     Dosage: UNK
     Route: 065
  386. MESALAMINE [Suspect]
     Active Substance: MESALAMINE
     Dosage: UNK
     Route: 065
  387. MESALAMINE [Suspect]
     Active Substance: MESALAMINE
     Dosage: UNK
     Route: 065
  388. MESALAMINE [Suspect]
     Active Substance: MESALAMINE
     Dosage: UNK
     Route: 065
  389. MESALAMINE [Suspect]
     Active Substance: MESALAMINE
     Dosage: UNK
     Route: 065
  390. MESALAMINE [Suspect]
     Active Substance: MESALAMINE
     Dosage: UNK
     Route: 065
  391. MESALAMINE [Suspect]
     Active Substance: MESALAMINE
     Dosage: UNK
     Route: 065
  392. MESALAMINE [Suspect]
     Active Substance: MESALAMINE
     Dosage: UNK
     Route: 065
  393. MESALAMINE [Suspect]
     Active Substance: MESALAMINE
     Dosage: UNK
     Route: 065
  394. MESALAMINE [Suspect]
     Active Substance: MESALAMINE
     Dosage: UNK, TABLET
     Route: 065
  395. MESALAMINE [Suspect]
     Active Substance: MESALAMINE
     Indication: Colitis ulcerative
     Dosage: 2.4 G
     Route: 065
  396. MESALAMINE [Suspect]
     Active Substance: MESALAMINE
     Dosage: 2.4 G
     Route: 065
  397. MESALAMINE [Suspect]
     Active Substance: MESALAMINE
     Dosage: 2.4 G
     Route: 065
  398. MESALAMINE [Suspect]
     Active Substance: MESALAMINE
     Dosage: 3 DF
     Route: 065
  399. MESALAMINE [Suspect]
     Active Substance: MESALAMINE
     Dosage: 3 DF
     Route: 065
  400. MESALAMINE [Suspect]
     Active Substance: MESALAMINE
     Dosage: 3 DF
     Route: 065
  401. MESALAMINE [Suspect]
     Active Substance: MESALAMINE
     Dosage: 4.8 G
     Route: 065
  402. MESALAMINE [Suspect]
     Active Substance: MESALAMINE
     Dosage: 4.8 G
     Route: 065
  403. MESALAMINE [Suspect]
     Active Substance: MESALAMINE
     Dosage: 4.8 G
     Route: 065
  404. MESALAMINE [Suspect]
     Active Substance: MESALAMINE
     Dosage: 4.8 MG, QD
     Route: 048
  405. MESALAMINE [Suspect]
     Active Substance: MESALAMINE
     Dosage: 50 MG
     Route: 048
  406. MESALAMINE [Suspect]
     Active Substance: MESALAMINE
     Dosage: 50 MG
     Route: 048
  407. MESALAMINE [Suspect]
     Active Substance: MESALAMINE
     Dosage: 50 MG
     Route: 065
  408. MESALAMINE [Suspect]
     Active Substance: MESALAMINE
     Dosage: 50 MG
     Route: 065
  409. MESALAMINE [Suspect]
     Active Substance: MESALAMINE
     Dosage: 50 MG
     Route: 065
  410. MESALAMINE [Suspect]
     Active Substance: MESALAMINE
     Dosage: 50 MG
     Route: 065
  411. MESALAMINE [Suspect]
     Active Substance: MESALAMINE
     Dosage: 50 MG
     Route: 065
  412. MESALAMINE [Suspect]
     Active Substance: MESALAMINE
     Dosage: 500 MG
     Route: 048
  413. MESALAMINE [Suspect]
     Active Substance: MESALAMINE
     Dosage: 6 DF
     Route: 065
  414. MESALAMINE [Suspect]
     Active Substance: MESALAMINE
     Dosage: 6 DF
     Route: 065
  415. MESALAMINE [Suspect]
     Active Substance: MESALAMINE
     Dosage: 6 DF
     Route: 065
  416. MESALAMINE [Suspect]
     Active Substance: MESALAMINE
     Dosage: 6 DF
     Route: 065
  417. MESALAMINE [Suspect]
     Active Substance: MESALAMINE
     Dosage: 6 DF
     Route: 065
  418. MESALAMINE [Suspect]
     Active Substance: MESALAMINE
     Dosage: 8 DF
     Route: 048
  419. MESALAMINE [Suspect]
     Active Substance: MESALAMINE
     Dosage: 8 DF
     Route: 065
  420. MESALAMINE [Suspect]
     Active Substance: MESALAMINE
     Dosage: UNK
     Route: 048
  421. MESALAMINE [Suspect]
     Active Substance: MESALAMINE
     Dosage: UNK
     Route: 048
  422. MESALAMINE [Suspect]
     Active Substance: MESALAMINE
     Dosage: UNK
     Route: 048
  423. MESALAMINE [Suspect]
     Active Substance: MESALAMINE
     Dosage: UNK
     Route: 048
  424. MESALAMINE [Suspect]
     Active Substance: MESALAMINE
     Dosage: UNK
     Route: 065
  425. MESALAMINE [Suspect]
     Active Substance: MESALAMINE
     Dosage: UNK
     Route: 065
  426. MESALAMINE [Suspect]
     Active Substance: MESALAMINE
     Dosage: UNK
     Route: 065
  427. MESALAMINE [Suspect]
     Active Substance: MESALAMINE
     Dosage: UNK
     Route: 065
  428. MESALAMINE [Suspect]
     Active Substance: MESALAMINE
     Dosage: UNK
     Route: 065
  429. MESALAMINE [Suspect]
     Active Substance: MESALAMINE
     Dosage: UNK
     Route: 065
  430. MESALAMINE [Suspect]
     Active Substance: MESALAMINE
     Dosage: UNK
     Route: 065
  431. MESALAMINE [Suspect]
     Active Substance: MESALAMINE
     Dosage: UNK
     Route: 065
  432. MESALAMINE [Suspect]
     Active Substance: MESALAMINE
     Dosage: UNK
     Route: 065
  433. MESALAMINE [Suspect]
     Active Substance: MESALAMINE
     Dosage: UNK
     Route: 065
  434. MESALAMINE [Suspect]
     Active Substance: MESALAMINE
     Dosage: UNK
     Route: 065
  435. MESALAMINE [Suspect]
     Active Substance: MESALAMINE
     Dosage: UNK
     Route: 065
  436. MESALAMINE [Suspect]
     Active Substance: MESALAMINE
     Dosage: UNK
     Route: 065
  437. MESALAMINE [Suspect]
     Active Substance: MESALAMINE
     Dosage: UNK
     Route: 065
  438. MESALAMINE [Suspect]
     Active Substance: MESALAMINE
     Dosage: UNK
     Route: 065
  439. MESALAMINE [Suspect]
     Active Substance: MESALAMINE
     Dosage: UNK
     Route: 065
  440. MESALAMINE [Suspect]
     Active Substance: MESALAMINE
     Dosage: UNK
     Route: 065
  441. MESALAMINE [Suspect]
     Active Substance: MESALAMINE
     Dosage: UNK
     Route: 065
  442. MESALAMINE [Suspect]
     Active Substance: MESALAMINE
     Dosage: UNK
     Route: 065
  443. MESALAMINE [Suspect]
     Active Substance: MESALAMINE
     Dosage: UNK
     Route: 065
  444. MESALAMINE [Suspect]
     Active Substance: MESALAMINE
     Dosage: UNK
     Route: 065
  445. MINERAL OIL [Suspect]
     Active Substance: MINERAL OIL
     Indication: Ill-defined disorder
     Dosage: UNK
     Route: 065
  446. OMEPRAZOLE [Suspect]
     Active Substance: OMEPRAZOLE
     Indication: Product used for unknown indication
     Dosage: 20 MG, BID
     Route: 065
  447. OXYCODONE [Suspect]
     Active Substance: OXYCODONE
     Indication: Product used for unknown indication
     Dosage: 5 MG, BID
     Route: 065
  448. PARA-AMINOSALICYLIC ACID [Suspect]
     Active Substance: AMINOSALICYLIC ACID
     Dosage: UNK
     Route: 048
  449. PARA-AMINOSALICYLIC ACID [Suspect]
     Active Substance: AMINOSALICYLIC ACID
     Dosage: UNK
     Route: 048
  450. PARA-AMINOSALICYLIC ACID [Suspect]
     Active Substance: AMINOSALICYLIC ACID
     Dosage: UNK
     Route: 048
  451. PARA-AMINOSALICYLIC ACID [Suspect]
     Active Substance: AMINOSALICYLIC ACID
     Indication: Colitis ulcerative
     Dosage: UNK
     Route: 065
  452. PARA-AMINOSALICYLIC ACID [Suspect]
     Active Substance: AMINOSALICYLIC ACID
     Indication: Deep vein thrombosis
     Dosage: UNK
     Route: 065
  453. PARA-AMINOSALICYLIC ACID [Suspect]
     Active Substance: AMINOSALICYLIC ACID
     Dosage: UNK
     Route: 065
  454. PREDNISONE [Suspect]
     Active Substance: PREDNISONE
     Dosage: 40 MG
     Route: 065
  455. PREDNISONE [Suspect]
     Active Substance: PREDNISONE
     Dosage: 50 MG
     Route: 065
  456. PREDNISONE [Suspect]
     Active Substance: PREDNISONE
     Dosage: 50 MG
     Route: 065
  457. PREDNISONE [Suspect]
     Active Substance: PREDNISONE
     Dosage: 50 MG
     Route: 065
  458. PREDNISONE [Suspect]
     Active Substance: PREDNISONE
     Indication: Colitis ulcerative
     Dosage: UNK
     Route: 065
  459. PREDNISONE [Suspect]
     Active Substance: PREDNISONE
     Dosage: UNK
     Route: 065
  460. PREDNISONE [Suspect]
     Active Substance: PREDNISONE
     Dosage: UNK
     Route: 065
  461. PREDNISONE [Suspect]
     Active Substance: PREDNISONE
     Dosage: UNK
     Route: 065
  462. PREDNISONE [Suspect]
     Active Substance: PREDNISONE
     Dosage: UNK
     Route: 065
  463. PREDNISONE [Suspect]
     Active Substance: PREDNISONE
     Dosage: UNK
     Route: 065
  464. ROSUVASTATIN CALCIUM [Suspect]
     Active Substance: ROSUVASTATIN CALCIUM
     Dosage: 10 MG, QD
     Route: 065
  465. ROSUVASTATIN CALCIUM [Suspect]
     Active Substance: ROSUVASTATIN CALCIUM
     Dosage: 10 MG, QD
     Route: 065
  466. ROSUVASTATIN CALCIUM [Suspect]
     Active Substance: ROSUVASTATIN CALCIUM
     Indication: Blood cholesterol increased
     Dosage: UNK
     Route: 065
  467. ROSUVASTATIN CALCIUM [Suspect]
     Active Substance: ROSUVASTATIN CALCIUM
     Indication: Ill-defined disorder
     Dosage: UNK
     Route: 065
  468. ROSUVASTATIN CALCIUM [Suspect]
     Active Substance: ROSUVASTATIN CALCIUM
     Dosage: UNK
     Route: 065
  469. ROSUVASTATIN CALCIUM [Suspect]
     Active Substance: ROSUVASTATIN CALCIUM
     Dosage: UNK
     Route: 065
  470. REMICADE [Suspect]
     Active Substance: INFLIXIMAB
     Indication: Crohn^s disease
     Dosage: 5 MG/KG
     Route: 041
  471. REMICADE [Suspect]
     Active Substance: INFLIXIMAB
     Dosage: 5 MG/KG
     Route: 041
  472. REMICADE [Suspect]
     Active Substance: INFLIXIMAB
     Dosage: 7 MG/KG
     Route: 065
  473. REMICADE [Suspect]
     Active Substance: INFLIXIMAB
     Dosage: 7 MG/KG
     Route: 065
  474. REMICADE [Suspect]
     Active Substance: INFLIXIMAB
     Indication: Colitis ulcerative
     Dosage: UNK
     Route: 041
  475. REMICADE [Suspect]
     Active Substance: INFLIXIMAB
     Dosage: UNK
     Route: 041
  476. REMICADE [Suspect]
     Active Substance: INFLIXIMAB
     Dosage: UNK
     Route: 041
  477. REMICADE [Suspect]
     Active Substance: INFLIXIMAB
     Dosage: UNK
     Route: 041
  478. MESALAMINE [Suspect]
     Active Substance: MESALAMINE
     Indication: Product used for unknown indication
     Dosage: UNK
     Route: 065
  479. SULFASALAZINE [Suspect]
     Active Substance: SULFASALAZINE
     Dosage: 3 MG
     Route: 048
  480. SULFASALAZINE [Suspect]
     Active Substance: SULFASALAZINE
     Dosage: 3 MG
     Route: 048
  481. SULFASALAZINE [Suspect]
     Active Substance: SULFASALAZINE
     Dosage: 3 DF, QD
     Route: 048
  482. SULFASALAZINE [Suspect]
     Active Substance: SULFASALAZINE
     Dosage: 3 DF
     Route: 048
  483. SULFASALAZINE [Suspect]
     Active Substance: SULFASALAZINE
     Dosage: 3 DF
     Route: 048
  484. SULFASALAZINE [Suspect]
     Active Substance: SULFASALAZINE
     Dosage: 5 MG
     Route: 048
  485. SULFASALAZINE [Suspect]
     Active Substance: SULFASALAZINE
     Dosage: 5 MG
     Route: 048
  486. SULFASALAZINE [Suspect]
     Active Substance: SULFASALAZINE
     Indication: Arthritis
     Dosage: UNK
     Route: 065
  487. SULFASALAZINE [Suspect]
     Active Substance: SULFASALAZINE
     Indication: Colitis ulcerative
     Dosage: UNK
     Route: 065
  488. SULFASALAZINE [Suspect]
     Active Substance: SULFASALAZINE
     Indication: Product used for unknown indication
     Dosage: UNK
     Route: 065
  489. SULFASALAZINE [Suspect]
     Active Substance: SULFASALAZINE
     Dosage: UNK
     Route: 065
  490. SULFASALAZINE [Suspect]
     Active Substance: SULFASALAZINE
     Dosage: UNK
     Route: 065
  491. SULFASALAZINE [Suspect]
     Active Substance: SULFASALAZINE
     Dosage: UNK
     Route: 065
  492. SULFASALAZINE [Suspect]
     Active Substance: SULFASALAZINE
     Dosage: UNK
     Route: 065
  493. SULFASALAZINE [Suspect]
     Active Substance: SULFASALAZINE
     Dosage: UNK
     Route: 065
  494. SULFASALAZINE [Suspect]
     Active Substance: SULFASALAZINE
     Dosage: UNK
     Route: 065
  495. SULFASALAZINE [Suspect]
     Active Substance: SULFASALAZINE
     Dosage: UNK
     Route: 065
  496. SULFASALAZINE [Suspect]
     Active Substance: SULFASALAZINE
     Dosage: UNK
     Route: 065
  497. SULFASALAZINE [Suspect]
     Active Substance: SULFASALAZINE
     Dosage: UNK
     Route: 065
  498. SULFASALAZINE [Suspect]
     Active Substance: SULFASALAZINE
     Dosage: UNK
     Route: 065
  499. SULFASALAZINE [Suspect]
     Active Substance: SULFASALAZINE
     Dosage: UNK
     Route: 065
  500. SULFASALAZINE [Suspect]
     Active Substance: SULFASALAZINE
     Dosage: UNK
     Route: 065
  501. SULFASALAZINE [Suspect]
     Active Substance: SULFASALAZINE
     Dosage: UNK
     Route: 065
  502. SULFASALAZINE [Suspect]
     Active Substance: SULFASALAZINE
     Dosage: UNK
     Route: 065
  503. SULFASALAZINE [Suspect]
     Active Substance: SULFASALAZINE
     Dosage: UNK
     Route: 065
  504. SULFASALAZINE [Suspect]
     Active Substance: SULFASALAZINE
     Dosage: UNK
     Route: 065
  505. SULFASALAZINE [Suspect]
     Active Substance: SULFASALAZINE
     Dosage: UNK
     Route: 065
  506. VITAMIN D3 [Suspect]
     Active Substance: CHOLECALCIFEROL
     Indication: Product used for unknown indication
     Dosage: 100 MG, QD
     Route: 065
  507. WARFARIN [Suspect]
     Active Substance: WARFARIN
     Dosage: 1 DF 1 EVERY 1 DAY
     Route: 065
  508. WARFARIN [Suspect]
     Active Substance: WARFARIN
     Dosage: 1 DF
     Route: 048
  509. WARFARIN [Suspect]
     Active Substance: WARFARIN
     Dosage: 1 DF
     Route: 048
  510. WARFARIN [Suspect]
     Active Substance: WARFARIN
     Dosage: 1 DF
     Route: 048
  511. WARFARIN [Suspect]
     Active Substance: WARFARIN
     Dosage: 1 DF
     Route: 048
  512. WARFARIN [Suspect]
     Active Substance: WARFARIN
     Dosage: 1 DF
     Route: 048
  513. WARFARIN [Suspect]
     Active Substance: WARFARIN
     Dosage: 1 DF
     Route: 048
  514. WARFARIN [Suspect]
     Active Substance: WARFARIN
     Dosage: 1 DF
     Route: 048
  515. WARFARIN [Suspect]
     Active Substance: WARFARIN
     Dosage: 1 DF
     Route: 048
  516. WARFARIN [Suspect]
     Active Substance: WARFARIN
     Dosage: 1 DF
     Route: 048
  517. WARFARIN [Suspect]
     Active Substance: WARFARIN
     Dosage: 1 DF
     Route: 048
  518. WARFARIN [Suspect]
     Active Substance: WARFARIN
     Dosage: 1 DF
     Route: 048
  519. WARFARIN [Suspect]
     Active Substance: WARFARIN
     Dosage: 1 DF
     Route: 048
  520. WARFARIN [Suspect]
     Active Substance: WARFARIN
     Dosage: 1 DF
     Route: 048
  521. WARFARIN [Suspect]
     Active Substance: WARFARIN
     Dosage: 1 DF
     Route: 048
  522. WARFARIN [Suspect]
     Active Substance: WARFARIN
     Dosage: 8 DF, QW
     Route: 048
  523. WARFARIN [Suspect]
     Active Substance: WARFARIN
     Dosage: 8 DF, QW
     Route: 048
  524. WARFARIN [Suspect]
     Active Substance: WARFARIN
     Dosage: 8 DF, QW
     Route: 048
  525. WARFARIN [Suspect]
     Active Substance: WARFARIN
     Dosage: 8 DF, QW
     Route: 048
  526. WARFARIN [Suspect]
     Active Substance: WARFARIN
     Dosage: 8 DF, QW
     Route: 048
  527. WARFARIN [Suspect]
     Active Substance: WARFARIN
     Dosage: 8 DF, QW
     Route: 048
  528. WARFARIN [Suspect]
     Active Substance: WARFARIN
     Dosage: 8 DF, QW
     Route: 048
  529. WARFARIN [Suspect]
     Active Substance: WARFARIN
     Dosage: 8 DF, QW
     Route: 048
  530. WARFARIN [Suspect]
     Active Substance: WARFARIN
     Dosage: 8 DF, QW
     Route: 048
  531. WARFARIN [Suspect]
     Active Substance: WARFARIN
     Dosage: 8 DF, QW
     Route: 048
  532. WARFARIN [Suspect]
     Active Substance: WARFARIN
     Dosage: 8 DF, QW
     Route: 048
  533. WARFARIN [Suspect]
     Active Substance: WARFARIN
     Dosage: 8 DF, QW
     Route: 048
  534. WARFARIN [Suspect]
     Active Substance: WARFARIN
     Dosage: 8 DF, QW
     Route: 048
  535. WARFARIN [Suspect]
     Active Substance: WARFARIN
     Dosage: 8 DF, QW
     Route: 048
  536. WARFARIN [Suspect]
     Active Substance: WARFARIN
     Dosage: 8 DF, QW
     Route: 048
  537. WARFARIN [Suspect]
     Active Substance: WARFARIN
     Dosage: 8 DF, QW
     Route: 048
  538. WARFARIN [Suspect]
     Active Substance: WARFARIN
     Dosage: 8 DF, QW
     Route: 048
  539. WARFARIN [Suspect]
     Active Substance: WARFARIN
     Dosage: 8 DF, QW
     Route: 048
  540. WARFARIN [Suspect]
     Active Substance: WARFARIN
     Dosage: 8 DF
     Route: 048
  541. WARFARIN [Suspect]
     Active Substance: WARFARIN
     Dosage: 8 DF
     Route: 048
  542. WARFARIN [Suspect]
     Active Substance: WARFARIN
     Dosage: 8 DF
     Route: 048
  543. WARFARIN [Suspect]
     Active Substance: WARFARIN
     Dosage: 8 DF
     Route: 048
  544. WARFARIN [Suspect]
     Active Substance: WARFARIN
     Dosage: 8 DF 1 EVERY 8 WEEKS
     Route: 065
  545. WARFARIN [Suspect]
     Active Substance: WARFARIN
     Dosage: UNK
     Route: 048
  546. WARFARIN [Suspect]
     Active Substance: WARFARIN
     Dosage: UNK
     Route: 048
  547. WARFARIN [Suspect]
     Active Substance: WARFARIN
     Dosage: UNK
     Route: 048
  548. WARFARIN [Suspect]
     Active Substance: WARFARIN
     Dosage: UNK
     Route: 048
  549. WARFARIN [Suspect]
     Active Substance: WARFARIN
     Dosage: UNK
     Route: 048
  550. WARFARIN [Suspect]
     Active Substance: WARFARIN
     Dosage: UNK
     Route: 048
  551. WARFARIN [Suspect]
     Active Substance: WARFARIN
     Dosage: UNK
     Route: 048
  552. WARFARIN [Suspect]
     Active Substance: WARFARIN
     Dosage: UNK
     Route: 048
  553. WARFARIN [Suspect]
     Active Substance: WARFARIN
     Dosage: UNK
     Route: 048
  554. WARFARIN [Suspect]
     Active Substance: WARFARIN
     Indication: Colitis ulcerative
     Dosage: UNK
     Route: 065
  555. WARFARIN [Suspect]
     Active Substance: WARFARIN
     Indication: Deep vein thrombosis
     Dosage: UNK
     Route: 065
  556. WARFARIN SODIUM [Suspect]
     Active Substance: WARFARIN SODIUM
     Dosage: 1 DF, QD
     Route: 048
  557. WARFARIN SODIUM [Suspect]
     Active Substance: WARFARIN SODIUM
     Dosage: 1 DF, QD
     Route: 048
  558. WARFARIN SODIUM [Suspect]
     Active Substance: WARFARIN SODIUM
     Dosage: 1 DF, QD
     Route: 048
  559. WARFARIN SODIUM [Suspect]
     Active Substance: WARFARIN SODIUM
     Dosage: 1 DF, QD
     Route: 048
  560. WARFARIN SODIUM [Suspect]
     Active Substance: WARFARIN SODIUM
     Dosage: 1 DF, QD
     Route: 048
  561. WARFARIN SODIUM [Suspect]
     Active Substance: WARFARIN SODIUM
     Dosage: 1 DF, QD
     Route: 048
  562. WARFARIN SODIUM [Suspect]
     Active Substance: WARFARIN SODIUM
     Dosage: 1 DF, QD,1 EVERY 8 WEEKS
     Route: 048
  563. WARFARIN SODIUM [Suspect]
     Active Substance: WARFARIN SODIUM
     Dosage: 1 DF,1 EVERY 8 WEEKS
     Route: 048
  564. WARFARIN SODIUM [Suspect]
     Active Substance: WARFARIN SODIUM
     Indication: Colitis ulcerative
     Dosage: 8 DF
     Route: 048
  565. WARFARIN SODIUM [Suspect]
     Active Substance: WARFARIN SODIUM
     Indication: Deep vein thrombosis
     Dosage: 8 DF
     Route: 048
  566. WARFARIN SODIUM [Suspect]
     Active Substance: WARFARIN SODIUM
     Dosage: 8 DF
     Route: 048
  567. WARFARIN SODIUM [Suspect]
     Active Substance: WARFARIN SODIUM
     Dosage: 8 DF
     Route: 048
  568. WARFARIN SODIUM [Suspect]
     Active Substance: WARFARIN SODIUM
     Dosage: 8 DF
     Route: 048
  569. WARFARIN SODIUM [Suspect]
     Active Substance: WARFARIN SODIUM
     Dosage: 8 DF
     Route: 048
  570. WARFARIN SODIUM [Suspect]
     Active Substance: WARFARIN SODIUM
     Dosage: 8 DF
     Route: 048
  571. WARFARIN SODIUM [Suspect]
     Active Substance: WARFARIN SODIUM
     Dosage: 8 DF
     Route: 065
  572. WARFARIN SODIUM [Suspect]
     Active Substance: WARFARIN SODIUM
     Dosage: 8 DF, 1 EVERY 8 WEEKS
     Route: 048
  573. WARFARIN SODIUM [Suspect]
     Active Substance: WARFARIN SODIUM
     Dosage: 8 DF,1 EVERY 8 WEEKS
     Route: 048
  574. WARFARIN SODIUM [Suspect]
     Active Substance: WARFARIN SODIUM
     Dosage: UNK
     Route: 048
  575. WARFARIN SODIUM [Suspect]
     Active Substance: WARFARIN SODIUM
     Dosage: UNK
     Route: 048
  576. WARFARIN SODIUM [Suspect]
     Active Substance: WARFARIN SODIUM
     Dosage: UNK
     Route: 048
  577. WARFARIN SODIUM [Suspect]
     Active Substance: WARFARIN SODIUM
     Dosage: UNK
     Route: 048
  578. WARFARIN SODIUM [Suspect]
     Active Substance: WARFARIN SODIUM
     Dosage: UNK
     Route: 048
  579. WARFARIN SODIUM [Suspect]
     Active Substance: WARFARIN SODIUM
     Dosage: UNK
     Route: 048
  580. WARFARIN SODIUM [Suspect]
     Active Substance: WARFARIN SODIUM
     Dosage: UNK
     Route: 048
  581. WARFARIN SODIUM [Suspect]
     Active Substance: WARFARIN SODIUM
     Dosage: UNK
     Route: 048
  582. WARFARIN SODIUM [Suspect]
     Active Substance: WARFARIN SODIUM
     Dosage: UNK
     Route: 048
  583. WARFARIN SODIUM [Suspect]
     Active Substance: WARFARIN SODIUM
     Dosage: UNK
     Route: 048
  584. ALGINIC ACID\ALUMINUM HYDROXIDE\MAGNESIUM TRISILICATE\SODIUM BICARBONA [Concomitant]
     Active Substance: ALGINIC ACID\ALUMINUM HYDROXIDE\MAGNESIUM TRISILICATE\SODIUM BICARBONATE
     Indication: Product used for unknown indication
     Dosage: UNK
     Route: 065
  585. AMLODIPINE BESYLATE [Concomitant]
     Active Substance: AMLODIPINE BESYLATE
     Indication: Product used for unknown indication
     Dosage: UNK
     Route: 065
  586. AMLODIPINE BESYLATE [Concomitant]
     Active Substance: AMLODIPINE BESYLATE
     Dosage: UNK
     Route: 065
  587. ATORVASTATIN [Concomitant]
     Active Substance: ATORVASTATIN
     Indication: Product used for unknown indication
     Dosage: UNK
     Route: 065
  588. ATORVASTATIN [Concomitant]
     Active Substance: ATORVASTATIN
     Dosage: UNK
     Route: 065
  589. BETNOVATE [Concomitant]
     Active Substance: BETAMETHASONE
     Indication: Ill-defined disorder
     Dosage: UNK
     Route: 065
  590. BISOPROLOL [Concomitant]
     Active Substance: BISOPROLOL\BISOPROLOL FUMARATE
     Indication: Dyscalculia
     Dosage: UNK
     Route: 065
  591. BISOPROLOL [Concomitant]
     Active Substance: BISOPROLOL\BISOPROLOL FUMARATE
     Indication: Ill-defined disorder
     Dosage: UNK
     Route: 065
  592. CALCIUM CARBONATE\CHOLECALCIFEROL [Concomitant]
     Active Substance: CALCIUM CARBONATE\CHOLECALCIFEROL
     Indication: Product used for unknown indication
     Dosage: UNK
     Route: 065
  593. CALCIUM CARBONATE;SODIUM ALGINATE;SODIUM BICARBONATE [Concomitant]
     Indication: Product used for unknown indication
     Dosage: UNK
     Route: 065
  594. CITALOPRAM HYDROBROMIDE [Concomitant]
     Active Substance: CITALOPRAM HYDROBROMIDE
     Indication: Ill-defined disorder
     Dosage: UNK
     Route: 065
  595. CLOBETASONE BUTYRATE [Concomitant]
     Active Substance: CLOBETASONE BUTYRATE
     Indication: Ill-defined disorder
     Dosage: UNK
     Route: 065
  596. DORZOLAMIDE HYDROCHLORIDE [Concomitant]
     Active Substance: DORZOLAMIDE HYDROCHLORIDE
     Indication: Product used for unknown indication
     Dosage: UNK
     Route: 065
  597. EMPAGLIFLOZIN [Concomitant]
     Active Substance: EMPAGLIFLOZIN
     Indication: Product used for unknown indication
     Dosage: UNK
     Route: 065
  598. UNSPECIFIED INGREDIENT [Concomitant]
     Active Substance: UNSPECIFIED INGREDIENT
     Indication: Product used for unknown indication
     Dosage: OPTHALMIC DROPS
     Route: 047
  599. FESOTERODINE FUMARATE [Concomitant]
     Active Substance: FESOTERODINE FUMARATE
     Indication: Product used for unknown indication
     Dosage: UNK
     Route: 065
  600. FOLIC ACID [Concomitant]
     Active Substance: FOLIC ACID
     Indication: Product used for unknown indication
     Dosage: UNK
     Route: 065
  601. LANSOPRAZOLE [Concomitant]
     Active Substance: LANSOPRAZOLE
     Indication: Product used for unknown indication
     Route: 065
  602. LATANOPROST [Concomitant]
     Active Substance: LATANOPROST
     Indication: Product used for unknown indication
     Dosage: UNK
     Route: 047
  603. LATANOPROST [Concomitant]
     Active Substance: LATANOPROST
     Dosage: UNK
     Route: 065
  604. LYRICA [Concomitant]
     Active Substance: PREGABALIN
     Indication: Product used for unknown indication
     Dosage: UNK
     Route: 065
  605. POLYETHYLENE GLYCOL 3350\POTASSIUM CHLORIDE\SODIUM BICARBONATE\SODIUM [Concomitant]
     Active Substance: POLYETHYLENE GLYCOL 3350\POTASSIUM CHLORIDE\SODIUM BICARBONATE\SODIUM CHLORIDE
     Indication: Product used for unknown indication
     Dosage: UNK
     Route: 065
  606. POLYETHYLENE GLYCOL 3350\POTASSIUM CHLORIDE\SODIUM BICARBONATE\SODIUM [Concomitant]
     Active Substance: POLYETHYLENE GLYCOL 3350\POTASSIUM CHLORIDE\SODIUM BICARBONATE\SODIUM CHLORIDE
     Dosage: UNK
     Route: 065
  607. METHOTREXATE [Concomitant]
     Active Substance: METHOTREXATE
     Indication: Colitis ulcerative
     Dosage: UNK
     Route: 065
  608. METHOTREXATE [Concomitant]
     Active Substance: METHOTREXATE
     Dosage: UNK
     Route: 065
  609. NAPHAZOLINE HYDROCHLORIDE [Concomitant]
     Active Substance: NAPHAZOLINE HYDROCHLORIDE
     Indication: Ill-defined disorder
     Dosage: UNK
     Route: 065
  610. NITROFURANTOIN [Concomitant]
     Active Substance: NITROFURANTOIN
     Indication: Ill-defined disorder
     Dosage: UNK
     Route: 065
  611. PRAVASTATIN [Concomitant]
     Active Substance: PRAVASTATIN
     Indication: Ill-defined disorder
     Dosage: UNK
     Route: 065
  612. RAMIPRIL [Concomitant]
     Active Substance: RAMIPRIL
     Indication: Ill-defined disorder
     Dosage: UNK
     Route: 065
  613. RAMIPRIL [Concomitant]
     Active Substance: RAMIPRIL
     Dosage: UNK
     Route: 065
  614. RIVAROXABAN [Concomitant]
     Active Substance: RIVAROXABAN
     Indication: Ill-defined disorder
     Dosage: UNK
     Route: 065
  615. TAMSULOSIN HYDROCHLORIDE [Concomitant]
     Active Substance: TAMSULOSIN HYDROCHLORIDE
     Indication: Product used for unknown indication
     Dosage: UNK
     Route: 065
  616. TOFACITINIB CITRATE [Concomitant]
     Active Substance: TOFACITINIB CITRATE
     Indication: Product used for unknown indication
     Dosage: UNK
     Route: 065
  617. XELJANZ [Concomitant]
     Active Substance: TOFACITINIB CITRATE
     Indication: Colitis ulcerative
     Dosage: 10 MG, 2 EVERY 1 DAY
     Route: 065
  618. XELJANZ [Concomitant]
     Active Substance: TOFACITINIB CITRATE
     Dosage: 10 MG, 2 EVERY 1 DAY
     Route: 065
  619. XELJANZ [Concomitant]
     Active Substance: TOFACITINIB CITRATE
     Dosage: 5 MG, QD
     Route: 048

REACTIONS (59)
  - Abdominal discomfort [Not Recovered/Not Resolved]
  - Accidental overdose [Not Recovered/Not Resolved]
  - Adverse drug reaction [Not Recovered/Not Resolved]
  - Arthritis [Not Recovered/Not Resolved]
  - Bronchiectasis [Not Recovered/Not Resolved]
  - Burns second degree [Not Recovered/Not Resolved]
  - COVID-19 [Not Recovered/Not Resolved]
  - Cardiac murmur [Not Recovered/Not Resolved]
  - Catarrh [Not Recovered/Not Resolved]
  - Cerebrovascular accident [Not Recovered/Not Resolved]
  - Colitis ulcerative [Not Recovered/Not Resolved]
  - Condition aggravated [Not Recovered/Not Resolved]
  - Confusional state [Not Recovered/Not Resolved]
  - Deep vein thrombosis [Not Recovered/Not Resolved]
  - Depression [Not Recovered/Not Resolved]
  - Dysgeusia [Not Recovered/Not Resolved]
  - Eczema [Not Recovered/Not Resolved]
  - Frequent bowel movements [Not Recovered/Not Resolved]
  - Fatigue [Not Recovered/Not Resolved]
  - Haematochezia [Not Recovered/Not Resolved]
  - Gingival pain [Not Recovered/Not Resolved]
  - Headache [Not Recovered/Not Resolved]
  - Hypopnoea [Not Recovered/Not Resolved]
  - Impaired quality of life [Not Recovered/Not Resolved]
  - Impaired work ability [Not Recovered/Not Resolved]
  - Loss of personal independence in daily activities [Not Recovered/Not Resolved]
  - Migraine [Not Recovered/Not Resolved]
  - Nightmare [Not Recovered/Not Resolved]
  - Pain in extremity [Not Recovered/Not Resolved]
  - Pyrexia [Not Recovered/Not Resolved]
  - Pain [Not Recovered/Not Resolved]
  - Palpitations [Not Recovered/Not Resolved]
  - Parosmia [Not Recovered/Not Resolved]
  - Pulmonary embolism [Not Recovered/Not Resolved]
  - Rash [Not Recovered/Not Resolved]
  - Rectal haemorrhage [Not Recovered/Not Resolved]
  - Rhinitis [Not Recovered/Not Resolved]
  - Somnolence [Not Recovered/Not Resolved]
  - Swollen tongue [Not Recovered/Not Resolved]
  - Tinnitus [Not Recovered/Not Resolved]
  - Tubulointerstitial nephritis [Not Recovered/Not Resolved]
  - Vertigo [Not Recovered/Not Resolved]
  - Systemic lupus erythematosus [Not Recovered/Not Resolved]
  - Steroid dependence [Not Recovered/Not Resolved]
  - Colitis ulcerative [Not Recovered/Not Resolved]
  - Fatigue [Not Recovered/Not Resolved]
  - Weight decreased [Not Recovered/Not Resolved]
  - Rash [Not Recovered/Not Resolved]
  - Tinnitus [Not Recovered/Not Resolved]
  - Stress [Not Recovered/Not Resolved]
  - Loss of personal independence in daily activities [Not Recovered/Not Resolved]
  - Adverse drug reaction [Not Recovered/Not Resolved]
  - Alcohol poisoning [Not Recovered/Not Resolved]
  - Drug ineffective [Not Recovered/Not Resolved]
  - Off label use [Not Recovered/Not Resolved]
  - Medication error [Not Recovered/Not Resolved]
  - Inappropriate schedule of product administration [Not Recovered/Not Resolved]
  - Product use in unapproved indication [Not Recovered/Not Resolved]
  - Intentional product use issue [Not Recovered/Not Resolved]
